FAERS Safety Report 12719276 (Version 1)
Quarter: 2016Q3

REPORT INFORMATION
  Report Type: Spontaneous
  Country: NL (occurrence: NL)
  Receive Date: 20160907
  Receipt Date: 20160907
  Transmission Date: 20161109
  Serious: Yes (Other)
  Sender: FDA-Public Use
  Company Number: NL-BRISTOL-MYERS SQUIBB COMPANY-BMS-2016-072857

PATIENT
  Age: 14 Year
  Sex: Female

DRUGS (1)
  1. DIDANOSINE. [Suspect]
     Active Substance: DIDANOSINE
     Indication: PERINATAL HIV INFECTION
     Route: 065

REACTIONS (3)
  - Non-cirrhotic portal hypertension [Unknown]
  - Portal shunt procedure [Unknown]
  - Oesophageal varices haemorrhage [Unknown]
